FAERS Safety Report 10916054 (Version 1)
Quarter: 2015Q1

REPORT INFORMATION
  Report Type: Report from Study
  Country: US (occurrence: US)
  Receive Date: 20150316
  Receipt Date: 20150316
  Transmission Date: 20150721
  Serious: Yes (Other)
  Sender: FDA-Public Use
  Company Number: US-SA-2015SA030453

PATIENT
  Age: 40 Year
  Sex: Male

DRUGS (1)
  1. FABRAZYME [Suspect]
     Active Substance: AGALSIDASE BETA
     Indication: FABRY^S DISEASE
     Dosage: Q2
     Route: 042
     Dates: start: 20050215

REACTIONS (2)
  - Fall [Unknown]
  - Tibia fracture [Unknown]

NARRATIVE: CASE EVENT DATE: 201503
